FAERS Safety Report 25676290 (Version 3)
Quarter: 2025Q3

REPORT INFORMATION
  Report Type: Report from Study
  Country: US (occurrence: US)
  Receive Date: 20250813
  Receipt Date: 20250820
  Transmission Date: 20251020
  Serious: No
  Sender: MALLINCKRODT
  Company Number: US-MALLINCKRODT-MNK202504976

PATIENT
  Age: 1 Year
  Sex: Male
  Weight: 14 kg

DRUGS (2)
  1. CORTICOTROPIN [Suspect]
     Active Substance: CORTICOTROPIN
     Indication: Infantile spasms
     Dosage: 42.4 UNITS
     Dates: start: 20250730
  2. CORTICOTROPIN [Suspect]
     Active Substance: CORTICOTROPIN
     Dosage: 16.8 UNITS
     Route: 030
     Dates: start: 2025, end: 20250811

REACTIONS (3)
  - Electroencephalogram abnormal [Recovered/Resolved]
  - Swelling [Unknown]
  - Irritability [Unknown]

NARRATIVE: CASE EVENT DATE: 20250101
